FAERS Safety Report 10072196 (Version 2)
Quarter: 2014Q2

REPORT INFORMATION
  Report Type: Spontaneous
  Country: US (occurrence: None)
  Receive Date: 20140409
  Receipt Date: 20140507
  Transmission Date: 20141212
  Serious: Yes (Other)
  Sender: FDA-Public Use
  Company Number: 2014-US-0076

PATIENT
  Age: 86 Year
  Sex: Female
  Weight: 44.45 kg

DRUGS (2)
  1. FARESTON [Suspect]
     Indication: NEOPLASM MALIGNANT
     Dosage: ONE TABLET
     Route: 048
     Dates: start: 20140327, end: 20140327
  2. LEXAPRO (ESCITALOPRAM OXALATE) [Concomitant]

REACTIONS (4)
  - Lethargy [None]
  - Hypertension [None]
  - Tremor [None]
  - Pain [None]
